FAERS Safety Report 8840021 (Version 1)
Quarter: 2012Q4

REPORT INFORMATION
  Report Type: 
  Country: US (occurrence: US)
  Receive Date: 20121015
  Receipt Date: 20121015
  Transmission Date: 20130627
  Serious: Yes (Other)
  Sender: FDA-Public Use
  Company Number: US-PFIZER INC-2012254022

PATIENT
  Age: 58 Year
  Sex: Female
  Weight: 79.37 kg

DRUGS (1)
  1. LYRICA [Suspect]
     Indication: BLOOD CHOLESTEROL INCREASED
     Dosage: UNK, 1x/day
     Route: 048
     Dates: start: 200911, end: 2011

REACTIONS (2)
  - Blood cholesterol increased [Unknown]
  - Infectious mononucleosis [Unknown]
